FAERS Safety Report 10825090 (Version 1)
Quarter: 2015Q1

REPORT INFORMATION
  Report Type: Report from Study
  Country: US (occurrence: US)
  Receive Date: 20150219
  Receipt Date: 20150219
  Transmission Date: 20150721
  Serious: No
  Sender: FDA-Public Use
  Company Number: US-ABBVIE-14K-163-1319141-00

PATIENT
  Age: 48 Year
  Sex: Female

DRUGS (2)
  1. HUMIRA [Suspect]
     Active Substance: ADALIMUMAB
     Indication: CROHN^S DISEASE
     Route: 065
     Dates: start: 20140814
  2. TESSALON [Suspect]
     Active Substance: BENZONATATE
     Indication: COUGH
     Route: 065
     Dates: start: 201412, end: 201412

REACTIONS (6)
  - Thirst [Not Recovered/Not Resolved]
  - Constipation [Not Recovered/Not Resolved]
  - Dry throat [Not Recovered/Not Resolved]
  - Nasopharyngitis [Unknown]
  - Bronchitis [Recovering/Resolving]
  - Feeling abnormal [Unknown]

NARRATIVE: CASE EVENT DATE: 20141203
